FAERS Safety Report 5466258-5 (Version None)
Quarter: 2007Q3

REPORT INFORMATION
  Report Type: 
  Country: None (occurrence: None)
  Receive Date: 20070919
  Receipt Date: 20070905
  Transmission Date: 20080115
  Serious: Yes (Death, Hospitalization, Other)
  Sender: FDA-Public Use
  Company Number: 2007SP018470

PATIENT
  Age: 60 Year
  Sex: Female

DRUGS (1)
  1. BETAMETHASONE [Suspect]
     Indication: ASTHMA
     Dosage: 2 MG; QD; PO
     Route: 048
     Dates: start: 19810101

REACTIONS (10)
  - ASTHMA [None]
  - ATELECTASIS [None]
  - BRAIN STEM INFARCTION [None]
  - CELLULITIS [None]
  - DIABETES MELLITUS [None]
  - DIABETES MELLITUS INADEQUATE CONTROL [None]
  - DIABETIC KETOACIDOSIS [None]
  - PULMONARY EMBOLISM [None]
  - SEPTIC SHOCK [None]
  - SUDDEN DEATH [None]
